FAERS Safety Report 9649973 (Version 1)
Quarter: 2013Q4

REPORT INFORMATION
  Report Type: Spontaneous
  Country: US (occurrence: US)
  Receive Date: 20131028
  Receipt Date: 20131028
  Transmission Date: 20140711
  Serious: No
  Sender: FDA-Public Use
  Company Number: US-PURDUE-USA-2012-0094638

PATIENT
  Sex: Male

DRUGS (1)
  1. OXYCONTIN (NDA 22-272) [Suspect]
     Indication: BACK PAIN
     Dosage: 80 MG, Q6H
     Route: 048

REACTIONS (2)
  - Drug effect delayed [Not Recovered/Not Resolved]
  - Inadequate analgesia [Unknown]
